FAERS Safety Report 13782441 (Version 1)
Quarter: 2017Q3

REPORT INFORMATION
  Report Type: Spontaneous
  Country: US (occurrence: US)
  Receive Date: 20170724
  Receipt Date: 20170724
  Transmission Date: 20171127
  Serious: No
  Sender: FDA-Public Use
  Company Number: US-PRINSTON PHARMACEUTICAL INC.-2017PRN00080

PATIENT
  Sex: Female
  Weight: 107.48 kg

DRUGS (2)
  1. LOSARTAN POTASSIUM. [Suspect]
     Active Substance: LOSARTAN POTASSIUM
     Indication: HYPERTENSION
     Dosage: 25 MG, 1X/DAY
     Route: 048
     Dates: start: 20150106, end: 20170323
  2. OMEPRAZOLE. [Concomitant]
     Active Substance: OMEPRAZOLE
     Dosage: 40 MG, 1X/DAY
     Dates: start: 20160229

REACTIONS (2)
  - Blood pressure increased [Unknown]
  - Product substitution issue [Recovered/Resolved]
